FAERS Safety Report 8765692 (Version 1)
Quarter: 2012Q4

REPORT INFORMATION
  Report Type: 
  Country: ES (occurrence: ES)
  Receive Date: 20120903
  Receipt Date: 20120903
  Transmission Date: 20130627
  Serious: Yes (Other)
  Sender: FDA-Public Use
  Company Number: PHHY2012ES075393

PATIENT
  Sex: Male

DRUGS (3)
  1. METHYLPHENIDATE [Suspect]
     Indication: ATTENTION DEFICIT/HYPERACTIVITY DISORDER
     Dosage: 36 mg per day day
  2. METHYLPHENIDATE [Interacting]
     Dosage: 54 mg per day
  3. DISULFIRAM [Interacting]
     Indication: ALCOHOLISM
     Dosage: 250 mg per day

REACTIONS (2)
  - Psychotic disorder [Unknown]
  - Drug interaction [Unknown]
